FAERS Safety Report 4563107-4 (Version None)
Quarter: 2005Q1

REPORT INFORMATION
  Report Type: 
  Country: None (occurrence: None)
  Receive Date: 20050125
  Receipt Date: 20050111
  Transmission Date: 20050727
  Serious: Yes (Hospitalization)
  Sender: FDA-Public Use
  Company Number: JP-2005-000294

PATIENT
  Age: 69 Year
  Sex: Female

DRUGS (1)
  1. PROSCOPE 300 (IOPROMIDE) [Suspect]
     Indication: UROGRAPHY
     Dosage: 50 ML, 1 DOSE, IV BOLUS
     Route: 040
     Dates: start: 20050105, end: 20050105

REACTIONS (3)
  - CARDIO-RESPIRATORY ARREST [None]
  - PULSE PRESSURE DECREASED [None]
  - SHOCK [None]
